FAERS Safety Report 9199324 (Version 2)
Quarter: 2013Q3

REPORT INFORMATION
  Report Type: Spontaneous
  Country: US (occurrence: US)
  Receive Date: 20130329
  Receipt Date: 20130704
  Transmission Date: 20140515
  Serious: No
  Sender: FDA-Public Use
  Company Number: US-009507513-1303USA010683

PATIENT
  Sex: Female
  Weight: 47.62 kg

DRUGS (1)
  1. CLARITIN-D-12 [Suspect]
     Indication: SINUS DISORDER
     Dosage: 10 MG, PRN
     Route: 048
     Dates: start: 2010

REACTIONS (2)
  - Drug effect increased [Not Recovered/Not Resolved]
  - Poor quality sleep [Recovered/Resolved]
